FAERS Safety Report 10362074 (Version 1)
Quarter: 2014Q1

REPORT INFORMATION
  Report Type: Spontaneous
  Country: US (occurrence: None)
  Receive Date: 20140306
  Receipt Date: 20140306
  Transmission Date: 20141002
  Serious: Yes (Other)
  Sender: FDA-Public Use
  Company Number: 163-21880-13053730

PATIENT
  Age: 76 Year
  Sex: Male
  Weight: 93 kg

DRUGS (22)
  1. REVLIMID (LENALIDOMIDE) (CAPSULES) [Suspect]
     Indication: PLASMA CELL MYELOMA
     Route: 048
     Dates: start: 20110729
  2. COUMADIN (WARFARIN SODIUM) (UNKNOWN) [Concomitant]
  3. ZOLPIDEM TARTRATE (TABLETS) [Concomitant]
  4. DEXAMETHASONE (UNKNOWN) [Concomitant]
  5. CALTRATE 600 +D (CALCITE D) (UNKNOWN) [Concomitant]
  6. AMLODIPINE BESYLATE (AMLODIPINE BESILATE) (TABLETS) [Concomitant]
  7. FUROSEMIDE (TABLETS) [Concomitant]
  8. METFORMIN HCL (METFORMIN HYDROCHLORIDE) (TABLETS) [Concomitant]
  9. PRAVASTATIN SODIUM (TABLETS) [Concomitant]
  10. CARVEDILOL (UNKNOWN) [Concomitant]
  11. OMEPRAZOLE [Concomitant]
  12. LISINOPRIL (TABLETS) [Concomitant]
  13. FERROUS SULFATE (TABLETS) [Concomitant]
  14. EPLERRENONE (TABLETS) [Concomitant]
  15. MULTIVITAMINS (TABLETS) [Concomitant]
  16. OXYBUTYNIN (TABLETS) [Concomitant]
  17. GARLIC (CAPSULES) [Concomitant]
  18. COENZYME Q10 (UBIDECARENONE) (CAPSULES) [Concomitant]
  19. BEE POLLEN (TABLETS) [Concomitant]
  20. FISH OIL [Concomitant]
  21. PROLIA (DENOSUMAB) [Concomitant]
  22. VITAMIN D3 (COLECALCIFEROL) (CAPSULES) [Concomitant]

REACTIONS (9)
  - Cardiac failure congestive [None]
  - Seasonal allergy [None]
  - Protein total increased [None]
  - Arthritis [None]
  - Pain [None]
  - Oropharyngeal pain [None]
  - Limb discomfort [None]
  - Respiratory tract infection [None]
  - Cough [None]
